FAERS Safety Report 24899729 (Version 1)
Quarter: 2025Q1

REPORT INFORMATION
  Report Type: Spontaneous
  Country: EG (occurrence: EG)
  Receive Date: 20250129
  Receipt Date: 20250129
  Transmission Date: 20250409
  Serious: Yes (Death, Other)
  Sender: PFIZER
  Company Number: EG-PFIZER INC-PV202500011148

PATIENT
  Age: 72 Year
  Sex: Female
  Weight: 80 kg

DRUGS (6)
  1. MEROPENEM [Suspect]
     Active Substance: MEROPENEM
     Indication: Pseudomonas infection
     Dosage: 1 G, 1X/DAY
     Dates: start: 20241207, end: 20241213
  2. COLISTIN [Suspect]
     Active Substance: COLISTIN
     Dosage: 2.5 MG, 2X/DAY
     Route: 042
     Dates: start: 20241207, end: 20241212
  3. LEVOFLOXACIN [Suspect]
     Active Substance: LEVOFLOXACIN
     Indication: Pseudomonas infection
     Dates: start: 20241207
  4. ATROVENT [Concomitant]
     Active Substance: IPRATROPIUM BROMIDE
  5. ELIQUIS [Concomitant]
     Active Substance: APIXABAN
  6. PULMICORT TURBUHALER [Concomitant]
     Active Substance: BUDESONIDE

REACTIONS (3)
  - Death [Fatal]
  - Blood creatinine increased [Not Recovered/Not Resolved]
  - Acute kidney injury [Not Recovered/Not Resolved]

NARRATIVE: CASE EVENT DATE: 20241201
